FAERS Safety Report 11149557 (Version 2)
Quarter: 2015Q2

REPORT INFORMATION
  Report Type: Spontaneous
  Country: ID (occurrence: ID)
  Receive Date: 20150529
  Receipt Date: 20150615
  Transmission Date: 20150821
  Serious: Yes (Hospitalization)
  Sender: FDA-Public Use
  Company Number: ID-BAYER-2015-262643

PATIENT
  Age: 17 Year
  Sex: Male

DRUGS (3)
  1. ONDANSETRON HYDROCHLORIDE. [Concomitant]
     Active Substance: ONDANSETRON HYDROCHLORIDE
  2. NEXIUM [Concomitant]
     Active Substance: ESOMEPRAZOLE MAGNESIUM
  3. CIPROXIN INFUSION 0.4 G [Suspect]
     Active Substance: CIPROFLOXACIN
     Indication: PNEUMONIA
     Dosage: 0.4 G, UNK
     Route: 042
     Dates: start: 20150518, end: 20150521

REACTIONS (3)
  - Rash macular [None]
  - Dengue fever [None]
  - Product colour issue [None]

NARRATIVE: CASE EVENT DATE: 20150521
